FAERS Safety Report 4336489-6 (Version None)
Quarter: 2004Q2

REPORT INFORMATION
  Report Type: 
  Country: None (occurrence: None)
  Receive Date: 20040412
  Receipt Date: 20040330
  Transmission Date: 20050107
  Serious: Yes (Life-Threatening, Hospitalization, Disabling)
  Sender: FDA-Public Use
  Company Number: US-ROCHE-363481

PATIENT
  Sex: Female

DRUGS (1)
  1. ROCEPHIN [Suspect]
     Route: 065
     Dates: start: 20031203, end: 20031203

REACTIONS (7)
  - ANAPHYLACTIC SHOCK [None]
  - ANXIETY [None]
  - CONVULSION [None]
  - EMOTIONAL DISTRESS [None]
  - INJURY [None]
  - PAIN [None]
  - RESPIRATORY ARREST [None]
